FAERS Safety Report 6581051-8 (Version None)
Quarter: 2010Q1

REPORT INFORMATION
  Report Type: 
  Country: None (occurrence: None)
  Receive Date: 20100215
  Receipt Date: 20100202
  Transmission Date: 20100710
  Serious: Yes (Other)
  Sender: FDA-Public Use
  Company Number: PHHY2010CH05469

PATIENT
  Sex: Male

DRUGS (2)
  1. EXFORGE [Suspect]
     Indication: HYPERTENSION
     Dosage: 160/10 MG PER DAY
     Dates: start: 20090701
  2. MARCUMAR [Concomitant]
     Indication: DEEP VEIN THROMBOSIS
     Dosage: UNK
     Dates: start: 20090701

REACTIONS (3)
  - FEELING COLD [None]
  - PALLOR [None]
  - RAYNAUD'S PHENOMENON [None]
